FAERS Safety Report 19932326 (Version 1)
Quarter: 2021Q4

REPORT INFORMATION
  Report Type: Spontaneous
  Country: US (occurrence: US)
  Receive Date: 20211007
  Receipt Date: 20211007
  Transmission Date: 20220303
  Serious: Yes (Other)
  Sender: FDA-Public Use
  Company Number: None

PATIENT
  Age: 45 Year
  Sex: Female
  Weight: 70.52 kg

DRUGS (17)
  1. CAPECITABINE [Suspect]
     Active Substance: CAPECITABINE
     Indication: Breast cancer
     Route: 048
     Dates: start: 20210928
  2. PERCOCET [Concomitant]
     Active Substance: ACETAMINOPHEN\OXYCODONE HYDROCHLORIDE
  3. IBUPROFEN [Concomitant]
     Active Substance: IBUPROFEN
  4. NEULASTA [Concomitant]
     Active Substance: PEGFILGRASTIM
  5. SUDAFED NASAL DECONGESTANT MAXIMUM STRENGTH [Concomitant]
     Active Substance: PSEUDOEPHEDRINE HYDROCHLORIDE
  6. VALIUM [Concomitant]
     Active Substance: DIAZEPAM
  7. TRODELVY [Concomitant]
     Active Substance: SACITUZUMAB GOVITECAN-HZIY
  8. ZOLPIDEM [Concomitant]
     Active Substance: ZOLPIDEM TARTRATE
  9. PROCHLORPERAZINE [Concomitant]
     Active Substance: PROCHLORPERAZINE
  10. DIAZEPAM [Concomitant]
     Active Substance: DIAZEPAM
  11. XANAX [Concomitant]
     Active Substance: ALPRAZOLAM
  12. TRAMADOL [Concomitant]
     Active Substance: TRAMADOL
  13. NORCO [Concomitant]
     Active Substance: ACETAMINOPHEN\HYDROCODONE BITARTRATE
  14. XGEVA [Concomitant]
     Active Substance: DENOSUMAB
  15. VENTOLIN [Concomitant]
     Active Substance: ALBUTEROL SULFATE
  16. FERROUS SULFATE [Concomitant]
     Active Substance: FERROUS SULFATE
  17. PEPCID [Concomitant]
     Active Substance: FAMOTIDINE

REACTIONS (1)
  - Palmar-plantar erythrodysaesthesia syndrome [None]

NARRATIVE: CASE EVENT DATE: 20211007
